FAERS Safety Report 20830369 (Version 2)
Quarter: 2022Q3

REPORT INFORMATION
  Report Type: Spontaneous
  Country: US (occurrence: US)
  Receive Date: 20220514
  Receipt Date: 20220922
  Transmission Date: 20221026
  Serious: No
  Sender: FDA-Public Use
  Company Number: US-BRISTOL-MYERS SQUIBB COMPANY-2022-036453

PATIENT
  Age: 78 Year
  Sex: Male
  Weight: 73.02 kg

DRUGS (1)
  1. REVLIMID [Suspect]
     Active Substance: LENALIDOMIDE
     Indication: Plasma cell myeloma
     Dosage: 15 MG ORAL DAILY,  21D ON 7D OFF
     Route: 048

REACTIONS (2)
  - Sunburn [Unknown]
  - Hiccups [Unknown]
